FAERS Safety Report 6688437-1 (Version None)
Quarter: 2010Q2

REPORT INFORMATION
  Report Type: 
  Country: None (occurrence: None)
  Receive Date: 20100420
  Receipt Date: 20100409
  Transmission Date: 20101027
  Serious: Yes (Other)
  Sender: FDA-Public Use
  Company Number: US-AMGEN-QUU403190

PATIENT
  Sex: Female
  Weight: 99.9 kg

DRUGS (6)
  1. ENBREL [Suspect]
     Indication: PSORIASIS
     Route: 058
     Dates: start: 20080123
  2. ENBREL [Suspect]
     Indication: PSORIATIC ARTHROPATHY
  3. ESTRACE [Concomitant]
     Dates: start: 20091001
  4. LODINE [Concomitant]
     Dates: start: 20100331
  5. CARDIZEM [Concomitant]
     Dates: start: 20100331
  6. HYDROCHLOROTHIAZIDE [Concomitant]
     Dates: start: 20080101

REACTIONS (6)
  - CARCINOID TUMOUR OF THE APPENDIX [None]
  - CERVICITIS CYSTIC [None]
  - HAEMORRHAGIC OVARIAN CYST [None]
  - HEADACHE [None]
  - HYPOAESTHESIA [None]
  - UTERINE POLYP [None]
